FAERS Safety Report 8955440 (Version 1)
Quarter: 2012Q4

REPORT INFORMATION
  Report Type: Spontaneous
  Country: US (occurrence: None)
  Receive Date: 20121130
  Receipt Date: 20121130
  Transmission Date: 20130627
  Serious: Yes (Hospitalization)
  Sender: FDA-Public Use
  Company Number: 12AE012

PATIENT
  Age: 67 Year
  Sex: Male

DRUGS (2)
  1. ACETAMINOPHEN [Suspect]
     Indication: BACK PAIN
     Dosage: 5 in total
     Route: 048
     Dates: start: 20121113, end: 20121116
  2. TEKTURNA [Concomitant]

REACTIONS (4)
  - Gastrointestinal pain [None]
  - Back pain [None]
  - Gallbladder disorder [None]
  - Sinus bradycardia [None]
